FAERS Safety Report 18355293 (Version 1)
Quarter: 2020Q4

REPORT INFORMATION
  Report Type: Spontaneous
  Country: US (occurrence: US)
  Receive Date: 20201006
  Receipt Date: 20201006
  Transmission Date: 20210114
  Serious: Yes (Hospitalization)
  Sender: FDA-Public Use
  Company Number: None

PATIENT
  Age: 34 Year
  Sex: Female

DRUGS (17)
  1. AZITHROMYCIN ANHYDROUS. [Concomitant]
     Active Substance: AZITHROMYCIN ANHYDROUS
  2. METFORMIN [Concomitant]
     Active Substance: METFORMIN HYDROCHLORIDE
  3. HUMIRA [Suspect]
     Active Substance: ADALIMUMAB
     Indication: HIDRADENITIS
     Dosage: ?          OTHER DOSE:40MG/0.8MG;?
     Route: 058
     Dates: start: 201902
  4. VITAMIN D [Concomitant]
     Active Substance: VITAMIN D NOS
  5. BENZONATATE. [Concomitant]
     Active Substance: BENZONATATE
  6. BUT/APAP/CAF [Concomitant]
  7. CIPROFLOXACIN. [Concomitant]
     Active Substance: CIPROFLOXACIN
  8. MEDROXYPRAC [Concomitant]
  9. SMZ/TMP DS [Concomitant]
     Active Substance: SULFAMETHOXAZOLE\TRIMETHOPRIM
  10. PROCTOZONE [Concomitant]
     Active Substance: HYDROCORTISONE
  11. CEPHALEXIN. [Concomitant]
     Active Substance: CEPHALEXIN
  12. IBUPROFEN. [Concomitant]
     Active Substance: IBUPROFEN
  13. METHYLPRED [Concomitant]
     Active Substance: METHYLPREDNISOLONE
  14. APAP/CODEINE [Concomitant]
     Active Substance: ACETAMINOPHEN\CODEINE PHOSPHATE
  15. AZELAIC ACID. [Concomitant]
     Active Substance: AZELAIC ACID
  16. AMOXICILLIN. [Concomitant]
     Active Substance: AMOXICILLIN
  17. ANUCORT-HC [Concomitant]
     Active Substance: HYDROCORTISONE ACETATE

REACTIONS (3)
  - Condition aggravated [None]
  - Migraine [None]
  - Alopecia [None]

NARRATIVE: CASE EVENT DATE: 20200926
